FAERS Safety Report 7601534-9 (Version None)
Quarter: 2011Q3

REPORT INFORMATION
  Report Type: 
  Country: None (occurrence: None)
  Receive Date: 20110711
  Receipt Date: 20110628
  Transmission Date: 20111222
  Serious: Yes (Hospitalization, Other)
  Sender: FDA-Public Use
  Company Number: PHHY2011DE57384

PATIENT
  Age: 58 Year
  Sex: Male

DRUGS (2)
  1. CANDESARTAN CILEXETIL [Concomitant]
     Dosage: 16 MG, UNK
     Route: 048
  2. RASILEZ [Suspect]
     Dosage: 1 DF, QD
     Route: 048
     Dates: start: 20110201, end: 20110501

REACTIONS (1)
  - RENAL FAILURE ACUTE [None]
